FAERS Safety Report 20772633 (Version 7)
Quarter: 2024Q4

REPORT INFORMATION
  Report Type: Spontaneous
  Country: GB (occurrence: GB)
  Receive Date: 20220502
  Receipt Date: 20241206
  Transmission Date: 20250115
  Serious: Yes (Other)
  Sender: ALKEM
  Company Number: None

PATIENT
  Age: 32 Year
  Sex: Female

DRUGS (49)
  1. ARIPIPRAZOLE [Suspect]
     Active Substance: ARIPIPRAZOLE
     Indication: Hallucination, auditory
     Dosage: UNK
     Route: 065
  2. ARIPIPRAZOLE [Suspect]
     Active Substance: ARIPIPRAZOLE
     Dosage: UNK
     Route: 065
  3. ARIPIPRAZOLE [Suspect]
     Active Substance: ARIPIPRAZOLE
     Dosage: UNK
     Route: 065
  4. OLANZAPINE [Suspect]
     Active Substance: OLANZAPINE
     Indication: Hallucination, auditory
     Dosage: UNK
     Route: 065
  5. OLANZAPINE [Suspect]
     Active Substance: OLANZAPINE
     Indication: Schizophrenia
     Dosage: UNK
     Route: 048
  6. OLANZAPINE [Suspect]
     Active Substance: OLANZAPINE
     Indication: Drug ineffective
  7. QUETIAPINE FUMARATE [Suspect]
     Active Substance: QUETIAPINE FUMARATE
     Indication: Product used for unknown indication
     Dosage: UNK (COATED TABLET)
     Route: 065
  8. QUETIAPINE FUMARATE [Suspect]
     Active Substance: QUETIAPINE FUMARATE
     Dosage: UNK
     Route: 048
  9. QUETIAPINE FUMARATE [Suspect]
     Active Substance: QUETIAPINE FUMARATE
     Dosage: UNK
     Route: 065
  10. QUETIAPINE FUMARATE [Suspect]
     Active Substance: QUETIAPINE FUMARATE
     Dosage: UNK
     Route: 065
  11. QUETIAPINE FUMARATE [Suspect]
     Active Substance: QUETIAPINE FUMARATE
     Dosage: UNK
     Route: 065
  12. QUETIAPINE FUMARATE [Suspect]
     Active Substance: QUETIAPINE FUMARATE
     Dosage: UNK
     Route: 065
  13. AMISULPRIDE [Suspect]
     Active Substance: AMISULPRIDE
     Indication: Hallucination, auditory
     Dosage: UNK
     Route: 048
     Dates: start: 20050215
  14. AMISULPRIDE [Suspect]
     Active Substance: AMISULPRIDE
     Dosage: UNK
     Route: 065
  15. AMISULPRIDE [Suspect]
     Active Substance: AMISULPRIDE
     Dosage: UNK (VAGINAL TABLET)
     Route: 067
     Dates: start: 20050215
  16. CLOZAPINE [Suspect]
     Active Substance: CLOZAPINE
     Indication: Schizophrenia
     Dosage: UNK
     Route: 048
  17. CLOZAPINE [Suspect]
     Active Substance: CLOZAPINE
     Indication: Schizoaffective disorder
  18. ARIPIPRAZOLE [Suspect]
     Active Substance: ARIPIPRAZOLE
     Indication: Product used for unknown indication
     Dosage: UNK
     Route: 065
  19. CLOZARIL [Suspect]
     Active Substance: CLOZAPINE
     Indication: Schizophrenia
     Dosage: UNK
     Route: 065
  20. CLOZARIL [Suspect]
     Active Substance: CLOZAPINE
     Indication: Schizoaffective disorder
     Dosage: UNK, QD
     Route: 048
     Dates: start: 20180205, end: 20191205
  21. CLOZARIL [Suspect]
     Active Substance: CLOZAPINE
     Indication: Hallucination, auditory
     Dosage: UNK, QD
     Route: 048
     Dates: start: 20050215, end: 20171205
  22. CLOZARIL [Suspect]
     Active Substance: CLOZAPINE
     Dosage: UNK, QD
     Route: 048
  23. CLOZARIL [Suspect]
     Active Substance: CLOZAPINE
     Dosage: UNK
     Route: 048
     Dates: end: 20171205
  24. CLOZARIL [Suspect]
     Active Substance: CLOZAPINE
     Dosage: UNK, QD
     Route: 048
  25. CLOZARIL [Suspect]
     Active Substance: CLOZAPINE
     Dosage: UNK
     Route: 048
  26. CLOZARIL [Suspect]
     Active Substance: CLOZAPINE
     Dosage: UNK
     Route: 048
     Dates: start: 20180205
  27. CLOZARIL [Suspect]
     Active Substance: CLOZAPINE
     Dosage: UNK
     Route: 048
     Dates: start: 20191205
  28. CLOZARIL [Suspect]
     Active Substance: CLOZAPINE
     Dosage: UNK, QD
     Route: 048
     Dates: start: 20181205, end: 20191205
  29. CLOZARIL [Suspect]
     Active Substance: CLOZAPINE
     Dosage: UNK
     Route: 065
     Dates: start: 20171205
  30. HALDOL [Suspect]
     Active Substance: HALOPERIDOL
     Indication: Hallucination, auditory
     Dosage: UNK
     Route: 065
     Dates: end: 20171205
  31. HALDOL [Suspect]
     Active Substance: HALOPERIDOL
     Indication: Schizophrenia
     Dosage: UNK
     Route: 065
  32. HALDOL [Suspect]
     Active Substance: HALOPERIDOL
     Dosage: UNK
     Route: 065
  33. HALOPERIDOL [Suspect]
     Active Substance: HALOPERIDOL
     Indication: Hallucination, auditory
     Dosage: UNK
     Route: 065
  34. HALOPERIDOL [Suspect]
     Active Substance: HALOPERIDOL
     Indication: Schizophrenia
     Dosage: UNK
     Route: 065
  35. RISPERDAL [Suspect]
     Active Substance: RISPERIDONE
     Indication: Schizophrenia
     Dosage: UNK
     Route: 065
  36. RISPERDAL [Suspect]
     Active Substance: RISPERIDONE
     Indication: Hallucination, auditory
     Dosage: UNK
     Route: 065
  37. RISPERDAL [Suspect]
     Active Substance: RISPERIDONE
     Indication: Drug ineffective
     Dosage: UNK
     Route: 065
  38. RISPERDAL [Suspect]
     Active Substance: RISPERIDONE
     Dosage: UNK
     Route: 065
  39. RISPERIDONE [Suspect]
     Active Substance: RISPERIDONE
     Indication: Hallucination, auditory
     Dosage: UNK
     Route: 065
     Dates: end: 20171205
  40. RISPERIDONE [Suspect]
     Active Substance: RISPERIDONE
     Indication: Schizophrenia
     Dosage: UNK
     Route: 065
  41. RISPERIDONE [Suspect]
     Active Substance: RISPERIDONE
     Dosage: UNK
     Route: 065
  42. RISPERIDONE [Suspect]
     Active Substance: RISPERIDONE
     Dosage: UNK
     Route: 065
  43. RISPERIDONE [Suspect]
     Active Substance: RISPERIDONE
     Dosage: UNK
     Route: 065
  44. ZUCLOPENTHIXOL [Suspect]
     Active Substance: ZUCLOPENTHIXOL
     Indication: Product used for unknown indication
     Dosage: UNK
     Route: 065
  45. ZUCLOPENTHIXOL HYDROCHLORIDE [Suspect]
     Active Substance: ZUCLOPENTHIXOL HYDROCHLORIDE
     Indication: Hallucination, auditory
     Dosage: UNK
     Route: 065
     Dates: end: 20171205
  46. ZUCLOPENTHIXOL HYDROCHLORIDE [Suspect]
     Active Substance: ZUCLOPENTHIXOL HYDROCHLORIDE
     Indication: Schizophrenia
  47. ZIPRASIDONE [Suspect]
     Active Substance: ZIPRASIDONE
     Indication: Hallucination, auditory
     Dosage: UNK
     Route: 048
  48. ZIPRASIDONE [Suspect]
     Active Substance: ZIPRASIDONE
     Indication: Schizophrenia
  49. ZIPRASIDONE [Suspect]
     Active Substance: ZIPRASIDONE
     Indication: Drug ineffective

REACTIONS (18)
  - Eating disorder [Unknown]
  - Eosinophil count decreased [Recovered/Resolved]
  - Mental impairment [Not Recovered/Not Resolved]
  - Schizophrenia [Not Recovered/Not Resolved]
  - Schizophrenia [Not Recovered/Not Resolved]
  - Drug abuse [Unknown]
  - Intentional product misuse [Unknown]
  - Leukopenia [Recovered/Resolved]
  - Malaise [Unknown]
  - Neutropenia [Recovered/Resolved]
  - Neutropenia [Recovered/Resolved]
  - Neutropenia [Recovered/Resolved]
  - Suicidal ideation [Unknown]
  - Medication error [Unknown]
  - Product use in unapproved indication [Unknown]
  - Drug ineffective [Unknown]
  - Malaise [Unknown]
  - Drug ineffective [Unknown]

NARRATIVE: CASE EVENT DATE: 20171101
